FAERS Safety Report 23198282 (Version 4)
Quarter: 2025Q2

REPORT INFORMATION
  Report Type: Spontaneous
  Country: US (occurrence: US)
  Receive Date: 20231117
  Receipt Date: 20250403
  Transmission Date: 20250716
  Serious: Yes (Hospitalization, Other)
  Sender: AMNEAL
  Company Number: US-AMNEAL PHARMACEUTICALS-2023-AMRX-03957

PATIENT
  Sex: Male
  Weight: 10.295 kg

DRUGS (8)
  1. VIGABATRIN [Suspect]
     Active Substance: VIGABATRIN
     Indication: Infantile spasms
     Dosage: 6 MILLILITER, 2 /DAY
     Route: 048
     Dates: start: 20231013
  2. VIGABATRIN [Suspect]
     Active Substance: VIGABATRIN
     Indication: Epilepsy
     Route: 048
     Dates: start: 20231017
  3. VIGABATRIN [Suspect]
     Active Substance: VIGABATRIN
     Route: 048
  4. PHENOBARBITAL [Concomitant]
     Active Substance: PHENOBARBITAL
     Indication: Seizure
     Route: 065
  5. CLOBAZAM [Concomitant]
     Active Substance: CLOBAZAM
     Indication: Product used for unknown indication
     Dosage: (2.5 MG/ML) 3 ML TWICE A DAY
     Route: 065
  6. LACOSAMIDE [Concomitant]
     Active Substance: LACOSAMIDE
     Indication: Seizure
     Dosage: (10 MG/ML) 3 ML TWICE DAILY
     Route: 065
  7. KEPPRA [Concomitant]
     Active Substance: LEVETIRACETAM
     Indication: Product used for unknown indication
     Dosage: (100MG/ML) 2.2 ML TWICE A DAY
     Route: 065
  8. FAMOTIDINE [Concomitant]
     Active Substance: FAMOTIDINE
     Indication: Product used for unknown indication
     Dosage: (40 MG/5 ML) 3 ML TWICE DAILY
     Route: 065

REACTIONS (11)
  - Cortical visual impairment [Unknown]
  - Hospitalisation [Unknown]
  - Illness [Unknown]
  - Hypoxia [Unknown]
  - Drug ineffective [Unknown]
  - Enterovirus infection [Recovered/Resolved]
  - Norovirus infection [Recovered/Resolved]
  - Lethargy [Unknown]
  - Vomiting [Recovered/Resolved]
  - Diarrhoea [Recovered/Resolved]
  - Respiratory disorder [Recovered/Resolved]
